FAERS Safety Report 19071567 (Version 1)
Quarter: 2021Q1

REPORT INFORMATION
  Report Type: Spontaneous
  Country: US (occurrence: US)
  Receive Date: 20210330
  Receipt Date: 20210330
  Transmission Date: 20210420
  Serious: No
  Sender: FDA-Public Use
  Company Number: US-HTU-2021US021749

PATIENT
  Sex: Female

DRUGS (2)
  1. ALOXI [Suspect]
     Active Substance: PALONOSETRON HYDROCHLORIDE
     Indication: PROPHYLAXIS OF NAUSEA AND VOMITING
     Dosage: UNK UNK, UNKNOWN
     Route: 065
     Dates: start: 20210129
  2. EMEND [Concomitant]
     Active Substance: APREPITANT
     Indication: NAUSEA

REACTIONS (2)
  - Diarrhoea [Unknown]
  - Vomiting [Unknown]
